FAERS Safety Report 4770976-1 (Version None)
Quarter: 2005Q3

REPORT INFORMATION
  Report Type: 
  Country: None (occurrence: None)
  Receive Date: 20050915
  Receipt Date: 20050714
  Transmission Date: 20060218
  Serious: Yes (Other)
  Sender: FDA-Public Use
  Company Number: PHFR2005GB02539

PATIENT
  Age: 70 Year
  Sex: Male

DRUGS (2)
  1. GLEEVEC [Suspect]
     Dosage: 400MG/DAY
     Route: 065
  2. GLEEVEC [Suspect]
     Dosage: UNK
     Route: 065

REACTIONS (6)
  - ANAEMIA [None]
  - BARRETT'S OESOPHAGUS [None]
  - DYSPNOEA [None]
  - HAEMOGLOBIN DECREASED [None]
  - HAEMORRHAGE [None]
  - OESOPHAGEAL ULCER [None]
